APPROVED DRUG PRODUCT: AMOXICILLIN
Active Ingredient: AMOXICILLIN
Strength: 500MG
Dosage Form/Route: CAPSULE;ORAL
Application: A207471 | Product #002 | TE Code: AB
Applicant: MICRO LABS LTD
Approved: Jun 24, 2022 | RLD: No | RS: No | Type: RX